FAERS Safety Report 23272950 (Version 1)
Quarter: 2023Q4

REPORT INFORMATION
  Report Type: Spontaneous
  Country: US (occurrence: None)
  Receive Date: 20231206
  Receipt Date: 20231206
  Transmission Date: 20240110
  Serious: No
  Sender: FDA-Public Use
  Company Number: None

PATIENT
  Sex: Female

DRUGS (2)
  1. RITUXAN [Suspect]
     Active Substance: RITUXIMAB
  2. RITUXAN [Concomitant]
     Active Substance: RITUXIMAB
     Dates: start: 20231129

REACTIONS (4)
  - Infusion related reaction [None]
  - Chest discomfort [None]
  - Nausea [None]
  - Myalgia [None]

NARRATIVE: CASE EVENT DATE: 20231129
